FAERS Safety Report 22180643 (Version 1)
Quarter: 2023Q2

REPORT INFORMATION
  Report Type: Spontaneous
  Country: US (occurrence: None)
  Receive Date: 20230405
  Receipt Date: 20230405
  Transmission Date: 20230721
  Serious: Yes (Hospitalization)
  Sender: FDA-Public Use
  Company Number: None

PATIENT
  Age: 52 Year
  Sex: Male
  Weight: 105.7 kg

DRUGS (1)
  1. BELATACEPT [Suspect]
     Active Substance: BELATACEPT
     Indication: Renal transplant
     Dosage: OTHER FREQUENCY : EVERY 28 DAYS;?
     Route: 042
     Dates: start: 20230302

REACTIONS (6)
  - Pyrexia [None]
  - Abdominal pain [None]
  - Flank pain [None]
  - Diarrhoea [None]
  - Blood culture positive [None]
  - Gram stain positive [None]

NARRATIVE: CASE EVENT DATE: 20230329
